FAERS Safety Report 14654108 (Version 2)
Quarter: 2018Q2

REPORT INFORMATION
  Report Type: Report from Study
  Country: US (occurrence: US)
  Receive Date: 20180319
  Receipt Date: 20180418
  Transmission Date: 20180711
  Serious: Yes (Hospitalization)
  Sender: FDA-Public Use
  Company Number: US-BIOGEN-2018BI00542501

PATIENT
  Sex: Female

DRUGS (3)
  1. TECFIDERA [Suspect]
     Active Substance: DIMETHYL FUMARATE
     Indication: MULTIPLE SCLEROSIS
     Dosage: STARTING DOSE
     Route: 048
  2. TECFIDERA [Suspect]
     Active Substance: DIMETHYL FUMARATE
     Dosage: MAINTENANCE DOSE
     Route: 048
  3. TYSABRI [Suspect]
     Active Substance: NATALIZUMAB
     Indication: MULTIPLE SCLEROSIS
     Dosage: INFUSED OVER 1 HOUR. DISCONTINUED AFTER FIVE INFUSIONS.
     Route: 042
     Dates: start: 2013, end: 2013

REACTIONS (5)
  - Feeling hot [Recovered/Resolved]
  - Fatigue [Recovered/Resolved]
  - Drug specific antibody present [Unknown]
  - Malaise [Recovered/Resolved]
  - Drug effect incomplete [Unknown]
